FAERS Safety Report 15891786 (Version 1)
Quarter: 2019Q1

REPORT INFORMATION
  Report Type: Other
  Country: FR (occurrence: FR)
  Receive Date: 20190130
  Receipt Date: 20190130
  Transmission Date: 20190417
  Serious: Yes (Life-Threatening)
  Sender: FDA-Public Use
  Company Number: FR-INCYTE CORPORATION-2019IN000514

PATIENT

DRUGS (2)
  1. JAKAVI [Suspect]
     Active Substance: RUXOLITINIB
     Indication: LEUKOERYTHROBLASTIC ANAEMIA
     Dosage: 30 MG, QD
     Route: 048
     Dates: start: 201212
  2. HYDREA [Suspect]
     Active Substance: HYDROXYUREA
     Indication: LEUKOERYTHROBLASTIC ANAEMIA
     Dosage: 1000 MG, QD
     Route: 048
     Dates: start: 200606

REACTIONS (1)
  - Squamous cell carcinoma [Not Recovered/Not Resolved]

NARRATIVE: CASE EVENT DATE: 201408
